FAERS Safety Report 8491908-9 (Version None)
Quarter: 2012Q3

REPORT INFORMATION
  Report Type: 
  Country: None (occurrence: None)
  Receive Date: 20120706
  Receipt Date: 20111219
  Transmission Date: 20120928
  Serious: No
  Sender: FDA-Public Use
  Company Number: US-GLAXOSMITHKLINE-A0958650A

PATIENT
  Age: 58 Year
  Sex: Female

DRUGS (2)
  1. PROVENTIL-HFA [Concomitant]
  2. FLOVENT [Suspect]
     Indication: ASTHMA
     Dosage: 2PUFF TWICE PER DAY
     Route: 055
     Dates: start: 20110101

REACTIONS (2)
  - THERAPEUTIC RESPONSE DECREASED [None]
  - URTICARIA [None]
